FAERS Safety Report 13976750 (Version 1)
Quarter: 2017Q3

REPORT INFORMATION
  Report Type: Spontaneous
  Country: US (occurrence: US)
  Receive Date: 20170915
  Receipt Date: 20170915
  Transmission Date: 20171128
  Serious: No
  Sender: FDA-Public Use
  Company Number: US-009507513-1708USA013126

PATIENT
  Sex: Female

DRUGS (1)
  1. DULERA [Suspect]
     Active Substance: FORMOTEROL FUMARATE DIHYDRATE\MOMETASONE FUROATE
     Indication: ASTHMA
     Dosage: 2 DF, BID
     Route: 055
     Dates: start: 2015

REACTIONS (6)
  - Nasopharyngitis [Recovered/Resolved]
  - Insomnia [Unknown]
  - Product quality issue [Unknown]
  - Palpitations [Unknown]
  - Dyspnoea [Unknown]
  - Reading disorder [Unknown]

NARRATIVE: CASE EVENT DATE: 2015
